FAERS Safety Report 5713207-8 (Version None)
Quarter: 2008Q2

REPORT INFORMATION
  Report Type: 
  Country: None (occurrence: None)
  Receive Date: 20080422
  Receipt Date: 20080418
  Transmission Date: 20081010
  Serious: Yes (Other)
  Sender: FDA-Public Use
  Company Number: FR-WYE-G01424508

PATIENT
  Age: 2 Year
  Sex: Male
  Weight: 13 kg

DRUGS (1)
  1. ADVIL ENFANTS ET NOURRISSONS [Suspect]
     Dosage: ONE SINGLE DOSE
     Route: 048
     Dates: start: 20080115, end: 20080115

REACTIONS (3)
  - INCORRECT DOSE ADMINISTERED [None]
  - MEDICATION ERROR [None]
  - WRONG TECHNIQUE IN DRUG USAGE PROCESS [None]
